FAERS Safety Report 14934358 (Version 7)
Quarter: 2018Q4

REPORT INFORMATION
  Report Type: Spontaneous
  Country: CA (occurrence: CA)
  Receive Date: 20180524
  Receipt Date: 20181203
  Transmission Date: 20190204
  Serious: Yes (Other)
  Sender: FDA-Public Use
  Company Number: CA-CELLTRION INC.-2018CA019979

PATIENT

DRUGS (7)
  1. INFLECTRA [Suspect]
     Active Substance: INFLIXIMAB-DYYB
     Dosage: 800 MG,  EVERY 6 WEEKS
     Route: 042
     Dates: start: 20180622
  2. INFLECTRA [Suspect]
     Active Substance: INFLIXIMAB-DYYB
     Dosage: 800 MG,  EVERY 6 WEEKS
     Route: 042
     Dates: start: 20180907
  3. PREDNISONE. [Concomitant]
     Active Substance: PREDNISONE
     Dosage: UNK
     Route: 048
     Dates: start: 2018
  4. INFLECTRA [Suspect]
     Active Substance: INFLIXIMAB-DYYB
     Indication: COLITIS ULCERATIVE
     Dosage: 800 MG, , (EVERY 2, 6, WEEKS THEN EVERY 8 WEEKS
     Route: 042
     Dates: start: 20180205
  5. INFLECTRA [Suspect]
     Active Substance: INFLIXIMAB-DYYB
     Dosage: 800 MG , (EVERY 2, 6, WEEKS THEN EVERY 8 WEEKS
     Route: 042
     Dates: start: 20180323
  6. INFLECTRA [Suspect]
     Active Substance: INFLIXIMAB-DYYB
     Dosage: 800 MG,EVERY 6 WEEKS
     Route: 042
     Dates: start: 20180511
  7. INFLECTRA [Suspect]
     Active Substance: INFLIXIMAB-DYYB
     Dosage: 800 MG,  EVERY 6 WEEKS
     Route: 042
     Dates: start: 20180727

REACTIONS (6)
  - Drug level decreased [Unknown]
  - Product use issue [Unknown]
  - Haemorrhage [Unknown]
  - Condition aggravated [Not Recovered/Not Resolved]
  - Blood pressure fluctuation [Unknown]
  - Ingrown hair [Not Recovered/Not Resolved]

NARRATIVE: CASE EVENT DATE: 2018
